FAERS Safety Report 22593730 (Version 1)
Quarter: 2023Q2

REPORT INFORMATION
  Report Type: Spontaneous
  Country: JP (occurrence: None)
  Receive Date: 20230613
  Receipt Date: 20230613
  Transmission Date: 20230721
  Serious: Yes (Other)
  Sender: FDA-Public Use
  Company Number: 2023A119724

PATIENT
  Age: 72 Year
  Sex: Male

DRUGS (5)
  1. ONDEXXYA [Interacting]
     Active Substance: ANDEXANET ALFA
     Indication: Haemorrhage
     Dosage: DOSE UNKNOWN
     Route: 042
     Dates: start: 20221228, end: 20221228
  2. HEPARIN CALCIUM [Interacting]
     Active Substance: HEPARIN CALCIUM
     Dates: start: 20221228, end: 20221228
  3. UNSPECIFIED INGREDIENT [Interacting]
     Active Substance: UNSPECIFIED INGREDIENT
     Dosage: DOSE UNKNOWN
     Route: 065
  4. UNSPECIFIED INGREDIENT [Interacting]
     Active Substance: UNSPECIFIED INGREDIENT
     Dosage: DOSE UNKNOWN
  5. ELIQUIS [Concomitant]
     Active Substance: APIXABAN
     Dosage: DOSE UNKNOWN

REACTIONS (1)
  - Inhibitory drug interaction [Recovered/Resolved]

NARRATIVE: CASE EVENT DATE: 20221228
